FAERS Safety Report 26211765 (Version 1)
Quarter: 2025Q4

REPORT INFORMATION
  Report Type: Spontaneous
  Country: JP (occurrence: JP)
  Receive Date: 20251230
  Receipt Date: 20251230
  Transmission Date: 20260118
  Serious: Yes (Hospitalization)
  Sender: ASTELLAS
  Company Number: JP-ASTELLAS-2025-AER-072103

PATIENT
  Sex: Female

DRUGS (3)
  1. TACROLIMUS [Suspect]
     Active Substance: TACROLIMUS
     Indication: Renal transplant
     Route: 048
  2. TACROLIMUS [Suspect]
     Active Substance: TACROLIMUS
     Dosage: TAKE 4 CAPSULES IN THE MORNING
     Route: 048
  3. CELLCEPT Capsules 250mg [Concomitant]
     Indication: Renal transplant
     Dosage: 2 CAPSULES IN THE MORNING AND EVENING
     Route: 048

REACTIONS (1)
  - Road traffic accident [Unknown]
